FAERS Safety Report 5832634-1 (Version None)
Quarter: 2008Q3

REPORT INFORMATION
  Report Type: 
  Country: None (occurrence: None)
  Receive Date: 20080804
  Receipt Date: 20080725
  Transmission Date: 20090109
  Serious: Yes (Other)
  Sender: FDA-Public Use
  Company Number: PHEH2008US06709

PATIENT

DRUGS (1)
  1. TEKTURNA [Suspect]

REACTIONS (2)
  - BLOOD CREATININE INCREASED [None]
  - RENAL FAILURE [None]
